FAERS Safety Report 17757162 (Version 2)
Quarter: 2020Q2

REPORT INFORMATION
  Report Type: Report from Study
  Country: US (occurrence: US)
  Receive Date: 20200507
  Receipt Date: 20200527
  Transmission Date: 20200714
  Serious: Yes (Hospitalization, Other)
  Sender: FDA-Public Use
  Company Number: US-UCBSA-2020002347

PATIENT
  Age: 38 Year
  Sex: Male
  Weight: 88 kg

DRUGS (3)
  1. BRIVIACT [Suspect]
     Active Substance: BRIVARACETAM
     Indication: SEIZURE
     Dosage: 100MG MORNING AND 150MG EVENING
     Route: 048
     Dates: start: 201907
  2. LACOSAMIDE. [Suspect]
     Active Substance: LACOSAMIDE
     Indication: SEIZURE
     Dosage: 200 MILLIGRAM, 2X/DAY (BID)
     Route: 048
     Dates: start: 201907, end: 202002
  3. TEGRETOL [Concomitant]
     Active Substance: CARBAMAZEPINE
     Indication: SEIZURE

REACTIONS (6)
  - Brain operation [Recovered/Resolved]
  - Feeling jittery [Unknown]
  - Depressed mood [Unknown]
  - Wrong dose [Unknown]
  - Tremor [Unknown]
  - Overdose [Unknown]

NARRATIVE: CASE EVENT DATE: 201907
